FAERS Safety Report 19066649 (Version 2)
Quarter: 2021Q2

REPORT INFORMATION
  Report Type: Spontaneous
  Country: US (occurrence: US)
  Receive Date: 20210328
  Receipt Date: 20210422
  Transmission Date: 20210717
  Serious: No
  Sender: FDA-Public Use
  Company Number: US-009507513-2103USA003447

PATIENT
  Age: 55 Year
  Sex: Male
  Weight: 150 kg

DRUGS (1)
  1. ENTEREG [Suspect]
     Active Substance: ALVIMOPAN
     Indication: POSTOPERATIVE ILEUS
     Dosage: 12 MG, BID
     Route: 048
     Dates: start: 20201016, end: 20201020

REACTIONS (2)
  - Extra dose administered [Unknown]
  - No adverse event [Unknown]

NARRATIVE: CASE EVENT DATE: 20201016
